FAERS Safety Report 6611254-5 (Version None)
Quarter: 2010Q1

REPORT INFORMATION
  Report Type: 
  Country: None (occurrence: None)
  Receive Date: 20100301
  Receipt Date: 20100301
  Transmission Date: 20100710
  Serious: Yes (Hospitalization)
  Sender: FDA-Public Use
  Company Number: None

PATIENT
  Sex: Male
  Weight: 3.7 kg

DRUGS (4)
  1. CARBOPLATIN [Suspect]
     Dosage: 32 MG
  2. ETOPOSIDE [Suspect]
     Dosage: 42 MG
  3. EPINEPHRINE [Concomitant]
  4. NOREPINEPHRINE [Concomitant]

REACTIONS (7)
  - HYPOTENSION [None]
  - NEUTROPENIA [None]
  - OEDEMA [None]
  - POOR PERIPHERAL CIRCULATION [None]
  - RENAL IMPAIRMENT [None]
  - SEPSIS [None]
  - STENOTROPHOMONAS INFECTION [None]
